FAERS Safety Report 17006054 (Version 2)
Quarter: 2020Q2

REPORT INFORMATION
  Report Type: Spontaneous
  Country: US (occurrence: US)
  Receive Date: 20191107
  Receipt Date: 20200410
  Transmission Date: 20200713
  Serious: No
  Sender: FDA-Public Use
  Company Number: US-SA-2019SA308120

PATIENT
  Age: 69 Year
  Sex: Male

DRUGS (2)
  1. PRALUENT [Suspect]
     Active Substance: ALIROCUMAB
     Indication: BLOOD CHOLESTEROL ABNORMAL
     Dosage: 75 MG, QOW
     Dates: start: 2018
  2. PRALUENT [Suspect]
     Active Substance: ALIROCUMAB
     Indication: HYPERLIPIDAEMIA
     Dosage: 75 MG/ML, QOW
     Route: 058
     Dates: start: 20160217

REACTIONS (4)
  - Nasopharyngitis [Unknown]
  - Respiratory tract congestion [Unknown]
  - Rhinorrhoea [Unknown]
  - Cough [Unknown]

NARRATIVE: CASE EVENT DATE: 201909
